FAERS Safety Report 9582113 (Version 1)
Quarter: 2013Q4

REPORT INFORMATION
  Report Type: Spontaneous
  Country: US (occurrence: US)
  Receive Date: 20131002
  Receipt Date: 20131002
  Transmission Date: 20140711
  Serious: No
  Sender: FDA-Public Use
  Company Number: US-AMGEN-USASP2013043799

PATIENT
  Age: 59 Year
  Sex: Female
  Weight: 71.66 kg

DRUGS (11)
  1. ENBREL [Suspect]
     Indication: PRODUCT USED FOR UNKNOWN INDICATION
     Dosage: 50 MG, QWK
     Route: 058
     Dates: start: 201303, end: 201304
  2. ATORVASTATIN [Concomitant]
     Dosage: 10 MG, UNK
  3. DIOVAN [Concomitant]
     Dosage: 320 MG, UNK
  4. TOPIRAMATE [Concomitant]
     Dosage: 25 MG, UNK
  5. PREDNISONE [Concomitant]
     Dosage: 1 MG, UNK
  6. TRAMADOL HCL [Concomitant]
     Dosage: 50 MG, UNK
  7. TIZANIDINE [Concomitant]
     Dosage: 4 MG, UNK
  8. PANTOPRAZOLE [Concomitant]
     Dosage: 40 MG, UNK
  9. HYDROCODONE [Concomitant]
     Dosage: UNK
  10. PERI-COLACE [Concomitant]
     Dosage: 8.6-50 MG
  11. HOMATROPIN                         /00125402/ [Concomitant]
     Dosage: UNK

REACTIONS (1)
  - Headache [Unknown]
